FAERS Safety Report 17613034 (Version 1)
Quarter: 2020Q2

REPORT INFORMATION
  Report Type: Report from Study
  Country: RU (occurrence: RU)
  Receive Date: 20200402
  Receipt Date: 20200402
  Transmission Date: 20200713
  Serious: Yes (Death)
  Sender: FDA-Public Use
  Company Number: RU-BEH-2020115357

PATIENT
  Age: 57 Month
  Sex: Male

DRUGS (4)
  1. HUMAN IMMUNOGLOBULIN (GENERIC) [Suspect]
     Active Substance: HUMAN IMMUNOGLOBULIN G
     Indication: KAWASAKI^S DISEASE
     Dosage: 1 GRAM PER KILOGRAM, QD (8TH DAY OF DISEASE)
     Route: 042
  2. HUMAN IMMUNOGLOBULIN (GENERIC) [Suspect]
     Active Substance: HUMAN IMMUNOGLOBULIN G
     Dosage: 1 GRAM PER KILOGRAM, QD (AFTER TRANSFER)
     Route: 042
  3. ACETYLSALICYLIC ACID [Concomitant]
     Active Substance: ASPIRIN
     Indication: KAWASAKI^S DISEASE
     Dosage: 70 MILLIGRAM/KILOGRAM, QD
     Route: 065
  4. HUMAN IMMUNOGLOBULIN (GENERIC) [Suspect]
     Active Substance: HUMAN IMMUNOGLOBULIN G
     Dosage: 1 GRAM PER KILOGRAM, QD (9TH DAY OF DISEASE)
     Route: 042

REACTIONS (2)
  - Kawasaki^s disease [Fatal]
  - Inappropriate schedule of product administration [Fatal]
